FAERS Safety Report 19553195 (Version 2)
Quarter: 2021Q3

REPORT INFORMATION
  Report Type: Report from Study
  Country: US (occurrence: US)
  Receive Date: 20210715
  Receipt Date: 20210730
  Transmission Date: 20211014
  Serious: Yes (Other)
  Sender: FDA-Public Use
  Company Number: US-ORGANON-O2106USA002490

PATIENT
  Age: 26 Year
  Sex: Female
  Weight: 161.45 kg

DRUGS (1)
  1. IMPLANON [Suspect]
     Active Substance: ETONOGESTREL
     Indication: CONTRACEPTION
     Dosage: 1 IMPLANT (DOSE/FREQUENCY ALSO REPORTED AS 68 MG) , STRENGTH: 68 MILLIGRAMS, LOCATION OF INSERTION:
     Route: 059
     Dates: start: 20210519, end: 20210706

REACTIONS (2)
  - Device dislocation [Recovered/Resolved]
  - Pain [Unknown]

NARRATIVE: CASE EVENT DATE: 20210622
